FAERS Safety Report 4745380-2 (Version None)
Quarter: 2005Q3

REPORT INFORMATION
  Report Type: 
  Country: None (occurrence: None)
  Receive Date: 20050815
  Receipt Date: 20050729
  Transmission Date: 20060218
  Serious: Yes (Hospitalization)
  Sender: FDA-Public Use
  Company Number: TRP_0149_2005

PATIENT
  Age: 50 Year
  Sex: Female
  Weight: 54.8852 kg

DRUGS (9)
  1. RIBASPHERE [Suspect]
     Indication: HEPATITIS C
     Dosage: PO
     Route: 048
     Dates: start: 20050323, end: 20050501
  2. RIBASPHERE [Suspect]
     Indication: HEPATITIS C
     Dosage: PO
     Route: 048
     Dates: start: 20050602
  3. PEG-INTRON [Suspect]
     Indication: HEPATITIS C
     Dosage: SC
     Route: 058
     Dates: start: 20050323, end: 20050501
  4. PEG-INTRON [Suspect]
     Indication: HEPATITIS C
     Dosage: SC
     Route: 058
     Dates: start: 20050602
  5. ALEVE [Concomitant]
  6. LEXARO [Concomitant]
  7. METHADONE HCL [Concomitant]
  8. PRILOSEC [Concomitant]
  9. SOMA [Concomitant]

REACTIONS (5)
  - BUNDLE BRANCH BLOCK RIGHT [None]
  - GASTROOESOPHAGEAL REFLUX DISEASE [None]
  - INTERNATIONAL NORMALISED RATIO DECREASED [None]
  - MYOCARDIAL INFARCTION [None]
  - WEIGHT DECREASED [None]
